FAERS Safety Report 19830773 (Version 1)
Quarter: 2021Q3

REPORT INFORMATION
  Report Type: Report from Study
  Country: US (occurrence: US)
  Receive Date: 20210915
  Receipt Date: 20210915
  Transmission Date: 20211014
  Serious: No
  Sender: FDA-Public Use
  Company Number: NVSC2021US207621

PATIENT
  Sex: Female

DRUGS (1)
  1. ENTRESTO [Suspect]
     Active Substance: SACUBITRIL\VALSARTAN
     Indication: PRODUCT USED FOR UNKNOWN INDICATION
     Dosage: 24/26MG, (SACUBITRIL 24.3 MG, VALSARTAN 25.7 MG) BID
     Route: 048

REACTIONS (2)
  - Fatigue [Not Recovered/Not Resolved]
  - Ejection fraction decreased [Unknown]
